FAERS Safety Report 5739862-4 (Version None)
Quarter: 2008Q2

REPORT INFORMATION
  Report Type: 
  Country: None (occurrence: None)
  Receive Date: 20080513
  Receipt Date: 20080513
  Transmission Date: 20081010
  Serious: Yes (Hospitalization, Other)
  Sender: FDA-Public Use
  Company Number: None

PATIENT
  Age: 65 Year
  Sex: Male
  Weight: 72.5755 kg

DRUGS (5)
  1. CYTOXAN [Suspect]
     Indication: LYMPHOMA
     Dosage: EVERY 4 WEEKS IV DRIP
     Route: 041
     Dates: start: 20080325, end: 20080325
  2. ADRIAMYCIN PFS [Suspect]
  3. VINCRISTINE [Suspect]
  4. PREDNISONE TAB [Suspect]
  5. RITUXAN [Suspect]
     Dosage: EVERY 4 WEEKS IV DRIP
     Route: 041

REACTIONS (3)
  - DYSPNOEA [None]
  - LUNG DISORDER [None]
  - OXYGEN SATURATION DECREASED [None]
